FAERS Safety Report 7490391-X (Version None)
Quarter: 2011Q2

REPORT INFORMATION
  Report Type: 
  Country: None (occurrence: None)
  Receive Date: 20110519
  Receipt Date: 20110420
  Transmission Date: 20111010
  Serious: Yes (Hospitalization, Other)
  Sender: FDA-Public Use
  Company Number: US-BAYER-201029011NA

PATIENT
  Age: 31 Year
  Sex: Female
  Weight: 56.689 kg

DRUGS (10)
  1. YAZ [Suspect]
     Indication: ORAL CONTRACEPTION
     Route: 048
  2. IBUPROFEN [Concomitant]
  3. CIPROFLOXACIN [Concomitant]
     Dosage: UNK
     Dates: start: 20081001
  4. INTRAVENOUS FLUIDS [Concomitant]
  5. NEXIUM [Concomitant]
  6. ZOLOFT [Concomitant]
  7. CEFADROXIL [Concomitant]
     Dosage: UNK
     Dates: start: 20080401
  8. CARAFATE [Concomitant]
  9. ERY-TAB [Concomitant]
     Dosage: UNK
     Dates: start: 20080901
  10. REGLAN [Concomitant]

REACTIONS (3)
  - CHOLECYSTITIS [None]
  - CHOLECYSTITIS ACUTE [None]
  - CHOLELITHIASIS [None]
